FAERS Safety Report 16054341 (Version 1)
Quarter: 2019Q1

REPORT INFORMATION
  Report Type: Spontaneous
  Country: US (occurrence: US)
  Receive Date: 20190309
  Receipt Date: 20190309
  Transmission Date: 20190418
  Serious: No
  Sender: FDA-Public Use
  Company Number: US-ASTRAZENECA-2019SE38193

PATIENT
  Age: 59 Year
  Sex: Female

DRUGS (1)
  1. PRILOSEC OTC [Suspect]
     Active Substance: OMEPRAZOLE MAGNESIUM
     Route: 048
     Dates: end: 201902

REACTIONS (4)
  - Macule [Recovered/Resolved]
  - Rash [Recovered/Resolved]
  - Haematochezia [Recovered/Resolved]
  - Pruritus [Recovered/Resolved]
